FAERS Safety Report 15538638 (Version 1)
Quarter: 2018Q4

REPORT INFORMATION
  Report Type: Spontaneous
  Country: US (occurrence: US)
  Receive Date: 20181022
  Receipt Date: 20181022
  Transmission Date: 20190205
  Serious: No
  Sender: FDA-Public Use
  Company Number: US-GLAXOSMITHKLINE-US2018188582

PATIENT
  Sex: Female

DRUGS (3)
  1. CARVEDILOL TABLET [Suspect]
     Active Substance: CARVEDILOL
     Indication: PRODUCT USED FOR UNKNOWN INDICATION
     Dosage: 3.125 MG, UNK
     Route: 048
  2. CARVEDILOL TABLET [Suspect]
     Active Substance: CARVEDILOL
     Dosage: 3.125 MG, UNK
     Route: 048
  3. CARVEDILOL TABLET [Suspect]
     Active Substance: CARVEDILOL
     Dosage: 6.25 UNK, UNK
     Route: 048

REACTIONS (2)
  - Hypotension [Unknown]
  - Vaginal haemorrhage [Not Recovered/Not Resolved]
